FAERS Safety Report 7981840-9 (Version None)
Quarter: 2011Q4

REPORT INFORMATION
  Report Type: 
  Country: None (occurrence: None)
  Receive Date: 20111215
  Receipt Date: 20111207
  Transmission Date: 20120403
  Serious: Yes (Hospitalization, Other)
  Sender: FDA-Public Use
  Company Number: CA-PFIZER INC-2011256658

PATIENT
  Age: 52 Year
  Sex: Female
  Weight: 69 kg

DRUGS (1)
  1. RAPAMUNE [Suspect]
     Indication: RENAL TRANSPLANT
     Dosage: 2 MG, 1X/DAY
     Route: 048
     Dates: start: 20000501, end: 20110401

REACTIONS (6)
  - PERICARDIAL EFFUSION [None]
  - TRANSPLANT FAILURE [None]
  - PLEURAL EFFUSION [None]
  - VIRAL PERICARDITIS [None]
  - ABDOMINAL DISTENSION [None]
  - OEDEMA PERIPHERAL [None]
